FAERS Safety Report 8337331-9 (Version None)
Quarter: 2012Q2

REPORT INFORMATION
  Report Type: 
  Country: None (occurrence: None)
  Receive Date: 20120504
  Receipt Date: 20120430
  Transmission Date: 20120825
  Serious: Yes (Death)
  Sender: FDA-Public Use
  Company Number: IT-ROXANE LABORATORIES, INC.-2012-RO-01153RO

PATIENT
  Age: 32 Year
  Sex: Female

DRUGS (1)
  1. PREDNISONE TAB [Suspect]
     Indication: ENDOCRINE OPHTHALMOPATHY
     Route: 048

REACTIONS (1)
  - CEREBROVASCULAR DISORDER [None]
